FAERS Safety Report 4841738-1 (Version None)
Quarter: 2005Q4

REPORT INFORMATION
  Report Type: 
  Country: None (occurrence: None)
  Receive Date: 20051125
  Receipt Date: 20051107
  Transmission Date: 20060501
  Serious: Yes (Death)
  Sender: FDA-Public Use
  Company Number: 2005-DE-04895GD

PATIENT
  Age: 43 Year

DRUGS (3)
  1. MORPHINE [Suspect]
  2. COCAINE (COCAINE) [Suspect]
  3. QUETIAPINE (QUETIAPINE) [Suspect]

REACTIONS (2)
  - COMPLETED SUICIDE [None]
  - MULTIPLE DRUG OVERDOSE INTENTIONAL [None]
